FAERS Safety Report 12313714 (Version 1)
Quarter: 2016Q2

REPORT INFORMATION
  Report Type: Spontaneous
  Country: KR (occurrence: KR)
  Receive Date: 20160428
  Receipt Date: 20160428
  Transmission Date: 20160815
  Serious: Yes (Hospitalization, Other)
  Sender: FDA-Public Use
  Company Number: KR-SA-2016SA081478

PATIENT
  Age: 44 Year
  Sex: Male

DRUGS (4)
  1. PREDNISOLONE. [Suspect]
     Active Substance: PREDNISOLONE
     Indication: IMMUNOSUPPRESSION
     Route: 065
  2. TACROLIMUS. [Suspect]
     Active Substance: TACROLIMUS
     Indication: IMMUNOSUPPRESSION
     Route: 065
  3. LEFLUNOMIDE. [Suspect]
     Active Substance: LEFLUNOMIDE
     Indication: POLYOMAVIRUS-ASSOCIATED NEPHROPATHY
     Route: 065
  4. MYCOPHENOLATE MOFETIL. [Suspect]
     Active Substance: MYCOPHENOLATE MOFETIL
     Indication: IMMUNOSUPPRESSION
     Route: 065

REACTIONS (7)
  - Viral load increased [Recovering/Resolving]
  - Product use issue [Unknown]
  - Blood creatinine increased [Recovering/Resolving]
  - Biopsy kidney abnormal [Recovering/Resolving]
  - Polymerase chain reaction positive [Recovering/Resolving]
  - Leukopenia [Unknown]
  - Polyomavirus-associated nephropathy [Recovering/Resolving]
